FAERS Safety Report 5968408-0 (Version None)
Quarter: 2008Q4

REPORT INFORMATION
  Report Type: 
  Country: None (occurrence: None)
  Receive Date: 20081126
  Receipt Date: 20081119
  Transmission Date: 20090506
  Serious: Yes (Other)
  Sender: FDA-Public Use
  Company Number: GB-ELI_LILLY_AND_COMPANY-GB200811004716

PATIENT
  Age: 15 Year
  Sex: Male

DRUGS (1)
  1. PROZAC [Suspect]

REACTIONS (3)
  - AGGRESSION [None]
  - ANTISOCIAL BEHAVIOUR [None]
  - HOMICIDE [None]
